FAERS Safety Report 13430795 (Version 1)
Quarter: 2017Q2

REPORT INFORMATION
  Report Type: Spontaneous
  Country: US (occurrence: US)
  Receive Date: 20170412
  Receipt Date: 20170412
  Transmission Date: 20170830
  Serious: Yes (Other)
  Sender: FDA-Public Use
  Company Number: US-DRREDDYS-USA/USA/16/0085889

PATIENT
  Age: 33 Year
  Sex: Female

DRUGS (9)
  1. ROPINIROLE HYDROCHLORIDE XR 2 MG, 4 MG, 6 MG, 8 MG AND 12 MG TABLETS [Suspect]
     Active Substance: ROPINIROLE HYDROCHLORIDE
     Indication: GAIT DISTURBANCE
     Route: 065
  2. CARBIDOPA/LEVODOPA [Suspect]
     Active Substance: CARBIDOPA\LEVODOPA
     Indication: FALL
  3. ENTACAPONE. [Suspect]
     Active Substance: ENTACAPONE
     Indication: FALL
  4. CARBIDOPA/LEVODOPA [Suspect]
     Active Substance: CARBIDOPA\LEVODOPA
     Indication: PARKINSONISM
     Route: 065
  5. ENTACAPONE. [Suspect]
     Active Substance: ENTACAPONE
     Indication: GAIT DISTURBANCE
  6. ROPINIROLE HYDROCHLORIDE XR 2 MG, 4 MG, 6 MG, 8 MG AND 12 MG TABLETS [Suspect]
     Active Substance: ROPINIROLE HYDROCHLORIDE
     Indication: PARKINSONISM
  7. ROPINIROLE HYDROCHLORIDE XR 2 MG, 4 MG, 6 MG, 8 MG AND 12 MG TABLETS [Suspect]
     Active Substance: ROPINIROLE HYDROCHLORIDE
     Indication: FALL
  8. ENTACAPONE. [Suspect]
     Active Substance: ENTACAPONE
     Indication: PARKINSONISM
     Route: 065
  9. CARBIDOPA/LEVODOPA [Suspect]
     Active Substance: CARBIDOPA\LEVODOPA
     Indication: GAIT DISTURBANCE

REACTIONS (3)
  - Confusional state [Unknown]
  - Somnolence [Unknown]
  - Drug ineffective [Unknown]
